FAERS Safety Report 11704512 (Version 1)
Quarter: 2015Q4

REPORT INFORMATION
  Report Type: Spontaneous
  Country: US (occurrence: US)
  Receive Date: 20151106
  Receipt Date: 20151106
  Transmission Date: 20160304
  Serious: No
  Sender: FDA-Public Use
  Company Number: US-TEVA-583212USA

PATIENT
  Sex: Female
  Weight: 115.32 kg

DRUGS (3)
  1. PRENATAL VITAMIN [Concomitant]
     Active Substance: VITAMINS
     Route: 048
     Dates: start: 201504
  2. GLATOPA [Concomitant]
     Active Substance: GLATIRAMER ACETATE
     Dates: start: 201506
  3. COPAXONE [Suspect]
     Active Substance: GLATIRAMER ACETATE
     Indication: MULTIPLE SCLEROSIS
     Dosage: FORM STRENGTH UNKNOWN
     Route: 065

REACTIONS (1)
  - Exposure during pregnancy [Unknown]
